FAERS Safety Report 19955908 (Version 2)
Quarter: 2022Q1

REPORT INFORMATION
  Report Type: Report from Study
  Country: US (occurrence: US)
  Receive Date: 20211014
  Receipt Date: 20220106
  Transmission Date: 20220423
  Serious: No
  Sender: FDA-Public Use
  Company Number: US-NOVARTISTESTPH-NVSC2021US235286

PATIENT
  Sex: Female

DRUGS (1)
  1. COSENTYX [Suspect]
     Active Substance: SECUKINUMAB
     Indication: Psoriasis
     Dosage: 300 MG, QW, 300 MG, BENEATH THE SKIN, SUBCUTANEOUS - BENEATH THE SKIN, ONCE A WEEK FOR 5 WEEK AND TH
     Route: 058

REACTIONS (1)
  - Injection site pain [Recovering/Resolving]
